FAERS Safety Report 11175273 (Version 6)
Quarter: 2020Q1

REPORT INFORMATION
  Report Type: Spontaneous
  Country: US (occurrence: US)
  Receive Date: 20150609
  Receipt Date: 20200319
  Transmission Date: 20200409
  Serious: No
  Sender: FDA-Public Use
  Company Number: US-PFIZER INC-2015188772

PATIENT
  Age: 32 Year
  Sex: Female

DRUGS (32)
  1. MS CONTIN [Concomitant]
     Active Substance: MORPHINE SULFATE
     Dosage: UNK
  2. FERROUS GLUCONATE [Concomitant]
     Active Substance: FERROUS GLUCONATE
     Indication: IRON DEFICIENCY
     Dosage: 1 DF, 1X/DAY (324MG/38MG)
  3. ZOLOFT [Concomitant]
     Active Substance: SERTRALINE HYDROCHLORIDE
     Indication: DEPRESSION
     Dosage: 150 MG, 1X/DAY
  4. NAPROSYN [Concomitant]
     Active Substance: NAPROXEN
     Indication: MYALGIA
     Dosage: 500 MG, AS NEEDED (VERY RARELY)
  5. VITAMIN D [Concomitant]
     Active Substance: VITAMIN D NOS
     Dosage: 50000 IU, 2X/WEEK
  6. MIRABEGRON ER [Concomitant]
     Active Substance: MIRABEGRON
     Indication: POLLAKIURIA
     Dosage: 50 MG, 1X/DAY
  7. LOPID [Concomitant]
     Active Substance: GEMFIBROZIL
     Indication: BLOOD CHOLESTEROL ABNORMAL
     Dosage: 600 MG, 2X/DAY
  8. SYNTHROID [Concomitant]
     Active Substance: LEVOTHYROXINE SODIUM
     Indication: HYPOTHYROIDISM
     Dosage: 150 UG, 1X/DAY
  9. OPANA ER [Concomitant]
     Active Substance: OXYMORPHONE HYDROCHLORIDE
     Indication: MIGRAINE
     Dosage: 2 MG, 3X/DAY
  10. NAPROSYN [Concomitant]
     Active Substance: NAPROXEN
     Indication: MUSCULOSKELETAL PAIN
  11. CALCIUM CITRATE [Concomitant]
     Active Substance: CALCIUM CITRATE
     Indication: NAUSEA
     Dosage: 800 MG, 1X/DAY
  12. PHENERGAN [Concomitant]
     Active Substance: PROMETHAZINE HYDROCHLORIDE
     Indication: NAUSEA
     Dosage: 25 MG, AS NEEDED- VERY RARELY (1-2 TABLETS)
  13. MORPHINE SULFATE. [Concomitant]
     Active Substance: MORPHINE SULFATE
     Indication: MIGRAINE
     Dosage: 15 MG, UNK (2(OR 3)X DAY)
  14. ROXANE [Concomitant]
     Dosage: UNK
  15. DULCOLEX [Concomitant]
     Indication: CONSTIPATION
     Dosage: UNK, AS NEEDED (1-3 TABLETS)
  16. LYRICA [Suspect]
     Active Substance: PREGABALIN
     Indication: PAIN
     Dosage: 75 MG, 2X/DAY
     Route: 048
  17. VITAMIN D [Concomitant]
     Active Substance: VITAMIN D NOS
     Indication: VITAMIN D DEFICIENCY
     Dosage: 50000 IU, 1X/DAY
  18. ESTROGEL [Concomitant]
     Active Substance: ESTRADIOL
     Indication: HAEMORRHAGE
     Dosage: 0.06 %, 1X/DAY
  19. VITAMIN C [Concomitant]
     Active Substance: ASCORBIC ACID
     Indication: MINERAL SUPPLEMENTATION
     Dosage: 500 MG, 1X/DAY
  20. WELLBUTRIN [Concomitant]
     Active Substance: BUPROPION HYDROCHLORIDE
     Indication: DEPRESSION
     Dosage: 150 MG, 1X/DAY
  21. STOOL SOFTENER (DOCUSATE) [Concomitant]
     Active Substance: DOCUSATE
     Indication: CONSTIPATION
     Dosage: 400 MG, 2X/DAY
  22. PRILOSEC [Concomitant]
     Active Substance: OMEPRAZOLE MAGNESIUM
     Indication: GASTROOESOPHAGEAL REFLUX DISEASE
     Dosage: 20 MG, 2X/DAY
  23. ZANAFLEX [Concomitant]
     Active Substance: TIZANIDINE HYDROCHLORIDE
     Indication: MYALGIA
     Dosage: 4 MG, AS NEEDED (1-2 TABLETS)
  24. BENADRYL [Concomitant]
     Active Substance: DIPHENHYDRAMINE HYDROCHLORIDE
     Indication: PRURITUS
     Dosage: 25 MG, AS NEEDED (1-3 TABLETS )
  25. LYRICA [Suspect]
     Active Substance: PREGABALIN
     Dosage: 75 MG, 4X/DAY (1 CAPSULE 1 PO (PER ORAL) QID (FOUR TIMES A DAY))
     Route: 048
  26. NEXPLANON [Concomitant]
     Active Substance: ETONOGESTREL
     Indication: MIGRAINE
  27. LYRICA [Suspect]
     Active Substance: PREGABALIN
     Indication: MIGRAINE
     Dosage: 75 MG, 3X/DAY
     Route: 048
  28. MSIR [Concomitant]
     Active Substance: MORPHINE SULFATE
     Dosage: UNK
  29. LACTULOSE. [Concomitant]
     Active Substance: LACTULOSE
     Indication: CONSTIPATION
     Dosage: 15 ML, 2X/DAY (10GM/15 ML SYP)
  30. KYTRIL [Concomitant]
     Active Substance: GRANISETRON HYDROCHLORIDE
     Indication: NAUSEA
     Dosage: 1 MG, 2X/DAY
  31. DEPLIN [Concomitant]
     Active Substance: LEVOMEFOLATE CALCIUM
     Indication: GENE MUTATION
     Dosage: 15 MG, 1X/DAY
  32. NEXPLANON [Concomitant]
     Active Substance: ETONOGESTREL
     Indication: ENDOMETRIOSIS
     Dosage: 68 MG, UNK (INSERTED IN LEFT ARM)
     Dates: start: 20151006

REACTIONS (2)
  - Migraine [Unknown]
  - Neuralgia [Unknown]
